FAERS Safety Report 11560535 (Version 1)
Quarter: 2015Q3

REPORT INFORMATION
  Report Type: Spontaneous
  Country: US (occurrence: US)
  Receive Date: 20150916
  Receipt Date: 20150916
  Transmission Date: 20151125
  Serious: No
  Sender: FDA-Public Use
  Company Number: US-ELI_LILLY_AND_COMPANY-US200809006118

PATIENT
  Age: 65 Year
  Sex: Female

DRUGS (3)
  1. FORTEO [Suspect]
     Active Substance: TERIPARATIDE
     Dates: start: 2008
  2. FORTEO [Suspect]
     Active Substance: TERIPARATIDE
     Indication: OSTEOPOROSIS
     Dates: start: 200612, end: 200706
  3. FORTEO [Suspect]
     Active Substance: TERIPARATIDE
     Dates: start: 200807, end: 2008

REACTIONS (6)
  - Fall [Unknown]
  - Fear [Unknown]
  - Compression fracture [Unknown]
  - Chest discomfort [Unknown]
  - Palpitations [Not Recovered/Not Resolved]
  - Heart rate increased [Unknown]

NARRATIVE: CASE EVENT DATE: 200712
